FAERS Safety Report 19841836 (Version 1)
Quarter: 2021Q3

REPORT INFORMATION
  Report Type: Spontaneous
  Country: US (occurrence: US)
  Receive Date: 20210916
  Receipt Date: 20210916
  Transmission Date: 20211014
  Serious: No
  Sender: FDA-Public Use
  Company Number: US-GLAXOSMITHKLINE-USCH2021061745

PATIENT
  Sex: Female

DRUGS (1)
  1. ADVIL [Suspect]
     Active Substance: IBUPROFEN
     Indication: PAIN
     Dosage: 2 DF
     Dates: start: 2021

REACTIONS (4)
  - Swelling face [Unknown]
  - Wheezing [Unknown]
  - Dyspnoea [Unknown]
  - Sneezing [Unknown]

NARRATIVE: CASE EVENT DATE: 2021
